FAERS Safety Report 18626634 (Version 1)
Quarter: 2020Q4

REPORT INFORMATION
  Report Type: Spontaneous
  Country: GB (occurrence: GB)
  Receive Date: 20201217
  Receipt Date: 20201217
  Transmission Date: 20210114
  Serious: Yes (Other)
  Sender: FDA-Public Use
  Company Number: GB-LUPIN PHARMACEUTICALS INC.-2020-10361

PATIENT
  Age: 25 Year
  Sex: Female

DRUGS (2)
  1. ERENUMAB [Concomitant]
     Active Substance: ERENUMAB
     Indication: IDIOPATHIC INTRACRANIAL HYPERTENSION
     Dosage: 70 MILLIGRAM (4 WEEKLY INJECTIONS)
     Route: 058
  2. DULOXETINE. [Suspect]
     Active Substance: DULOXETINE
     Indication: IDIOPATHIC INTRACRANIAL HYPERTENSION
     Dosage: UNK
     Route: 048

REACTIONS (1)
  - Drug ineffective [Unknown]
